FAERS Safety Report 12986308 (Version 2)
Quarter: 2016Q4

REPORT INFORMATION
  Report Type: Report from Study
  Country: TW (occurrence: TW)
  Receive Date: 20161130
  Receipt Date: 20161215
  Transmission Date: 20170207
  Serious: Yes (Hospitalization)
  Sender: FDA-Public Use
  Company Number: PHHY2016TW158734

PATIENT
  Age: 27 Year
  Sex: Female
  Weight: 62 kg

DRUGS (2)
  1. GILENYA [Suspect]
     Active Substance: FINGOLIMOD HYDROCHLORIDE
     Indication: RELAPSING-REMITTING MULTIPLE SCLEROSIS
     Dosage: QD
     Route: 048
     Dates: start: 20161019
  2. GILENYA [Suspect]
     Active Substance: FINGOLIMOD HYDROCHLORIDE
     Dosage: QD
     Route: 048
     Dates: start: 20161116, end: 20161117

REACTIONS (12)
  - Atrioventricular block [Recovered/Resolved]
  - Atrial fibrillation [Recovered/Resolved]
  - Electrocardiogram ST-T segment abnormal [Recovered/Resolved]
  - Atrioventricular block first degree [Recovered/Resolved]
  - Heart rate decreased [Recovered/Resolved]
  - Chest pain [Recovered/Resolved]
  - Nodal rhythm [Recovered/Resolved]
  - Blood pressure decreased [Unknown]
  - Electrocardiogram QT prolonged [Recovered/Resolved]
  - Bradyarrhythmia [Recovered/Resolved]
  - Chest discomfort [Recovered/Resolved]
  - Electrocardiogram P wave abnormal [Recovered/Resolved]

NARRATIVE: CASE EVENT DATE: 20161019
